FAERS Safety Report 13053703 (Version 1)
Quarter: 2016Q4

REPORT INFORMATION
  Report Type: Spontaneous
  Country: US (occurrence: US)
  Receive Date: 20161222
  Receipt Date: 20161222
  Transmission Date: 20170207
  Serious: Yes (Hospitalization, Other)
  Sender: FDA-Public Use
  Company Number: US-ASTELLAS-2016US049531

PATIENT
  Age: 68 Year
  Sex: Male

DRUGS (4)
  1. PROGRAF [Suspect]
     Active Substance: TACROLIMUS\TACROLIMUS ANHYDROUS
     Indication: PRODUCT USED FOR UNKNOWN INDICATION
     Dosage: UNK UNK, UNKNOWN FREQ.
     Route: 065
  2. RAPAMUNE [Suspect]
     Active Substance: SIROLIMUS
     Indication: PRODUCT USED FOR UNKNOWN INDICATION
     Route: 065
  3. RAPAMUNE [Suspect]
     Active Substance: SIROLIMUS
     Route: 065
  4. RAPAMUNE [Suspect]
     Active Substance: SIROLIMUS
     Route: 065
     Dates: end: 201610

REACTIONS (4)
  - Cytomegalovirus infection [Recovered/Resolved]
  - Renal impairment [Unknown]
  - Pain in extremity [Recovering/Resolving]
  - Shoulder arthroplasty [Unknown]

NARRATIVE: CASE EVENT DATE: 201607
